FAERS Safety Report 15192866 (Version 1)
Quarter: 2018Q3

REPORT INFORMATION
  Report Type: Report from Study
  Country: ES (occurrence: ES)
  Receive Date: 20180725
  Receipt Date: 20180725
  Transmission Date: 20181010
  Serious: Yes (Death, Hospitalization)
  Sender: FDA-Public Use
  Company Number: ES-TEVA-2018-ES-929171

PATIENT
  Age: 81 Year
  Sex: Male

DRUGS (3)
  1. ENALAPRIL [Suspect]
     Active Substance: ENALAPRIL
     Indication: HYPERTENSION
     Dosage: 1?0?1 | | UNIT DOSE FREQUENCY: 20 MG?MILLIGRAMS | | DOSE PER SHOT: 10 MG?MILLIGRAMS | | NUMBER OF OU
     Route: 048
     Dates: start: 2017
  2. FUROSEMIDA [Interacting]
     Active Substance: FUROSEMIDE
     Indication: CARDIAC FAILURE
     Dosage: 40 MILLIGRAM DAILY; 1?0?0 | | UNIT DOSE FREQUENCY: 40 MG?MILLIGRAMS | | DOSE PER SHOT: 40 MG?MILLIGR
     Route: 048
     Dates: start: 2017
  3. AMOXICILINA + CLAVUL?NICO [Concomitant]
     Indication: URINARY TRACT INFECTION
     Route: 065
     Dates: start: 20170422

REACTIONS (2)
  - Acute kidney injury [Fatal]
  - Drug interaction [Fatal]

NARRATIVE: CASE EVENT DATE: 20170426
